FAERS Safety Report 17014921 (Version 1)
Quarter: 2019Q4

REPORT INFORMATION
  Report Type: Spontaneous
  Country: US (occurrence: US)
  Receive Date: 20191002
  Receipt Date: 20191002
  Transmission Date: 20200122
  Serious: Yes (Hospitalization)
  Sender: FDA-Public Use
  Company Number: None

PATIENT
  Age: 73 Year
  Sex: Male

DRUGS (1)
  1. TICAGRELOR. [Suspect]
     Active Substance: TICAGRELOR
     Indication: CORONARY ARTERIAL STENT INSERTION
     Route: 058
     Dates: start: 20190625, end: 20190701

REACTIONS (3)
  - Dyspnoea [None]
  - Therapy change [None]
  - Fatigue [None]

NARRATIVE: CASE EVENT DATE: 20190701
